FAERS Safety Report 20732112 (Version 11)
Quarter: 2023Q2

REPORT INFORMATION
  Report Type: Spontaneous
  Country: IN (occurrence: IN)
  Receive Date: 20220420
  Receipt Date: 20230622
  Transmission Date: 20230722
  Serious: Yes (Other)
  Sender: FDA-Public Use
  Company Number: IN-PFIZER INC-202200569073

PATIENT
  Age: 77 Year
  Sex: Female

DRUGS (12)
  1. PALBOCICLIB [Suspect]
     Active Substance: PALBOCICLIB
     Indication: Breast cancer metastatic
     Dosage: UNK
     Route: 048
     Dates: start: 20180305
  2. PALBOCICLIB [Suspect]
     Active Substance: PALBOCICLIB
     Dosage: 125 MG
     Route: 048
  3. PALBOCICLIB [Suspect]
     Active Substance: PALBOCICLIB
     Dosage: 100 MG, 1X/DAY
     Route: 048
  4. PALBOCICLIB [Suspect]
     Active Substance: PALBOCICLIB
     Dosage: 75 MG, 1X/DAY
     Route: 048
  5. PALBOCICLIB [Suspect]
     Active Substance: PALBOCICLIB
     Dosage: 75 MG, CYCLIC (2 WEEK ON AND 2 WEEK OFF)
     Route: 048
  6. PREGABALIN [Concomitant]
     Active Substance: PREGABALIN
     Dosage: UNK
  7. LETROZOLE [Concomitant]
     Active Substance: LETROZOLE
     Dosage: 2.5 MG, 1X/DAY
  8. ZERODOL-MR [Concomitant]
     Dosage: UNK
  9. CYPON [Concomitant]
     Dosage: 5 ML (POD 0-0)
     Route: 048
  10. BETONIN [Concomitant]
     Dosage: 5 ML ( DOD 0-0)
  11. CREMAFFIN PLUS [Concomitant]
     Dosage: 3TIF SOS
  12. NEUKINE [Concomitant]
     Dosage: 300 MG, 1X/DAY
     Route: 058

REACTIONS (8)
  - Neutropenia [Unknown]
  - Diabetes mellitus [Unknown]
  - Blood test abnormal [Unknown]
  - White blood cell count decreased [Unknown]
  - Haemoglobin decreased [Unknown]
  - Blood creatinine increased [Unknown]
  - Off label use [Unknown]
  - Off label use [Unknown]
